FAERS Safety Report 15429513 (Version 1)
Quarter: 2018Q3

REPORT INFORMATION
  Report Type: Spontaneous
  Country: US (occurrence: US)
  Receive Date: 20180920
  Receipt Date: 20180920
  Transmission Date: 20181010
  Serious: Yes (Hospitalization)
  Sender: FDA-Public Use
  Company Number: None

PATIENT
  Age: 77 Year
  Sex: Male
  Weight: 59.6 kg

DRUGS (1)
  1. DAPTOMYCIN. [Suspect]
     Active Substance: DAPTOMYCIN
     Indication: ENDOCARDITIS STAPHYLOCOCCAL
     Route: 042
     Dates: start: 20180910, end: 20180919

REACTIONS (5)
  - Heart rate increased [None]
  - Oxygen saturation decreased [None]
  - Chills [None]
  - Tremor [None]
  - Respiratory rate increased [None]

NARRATIVE: CASE EVENT DATE: 20180919
